FAERS Safety Report 10510045 (Version 2)
Quarter: 2014Q4

REPORT INFORMATION
  Report Type: Spontaneous
  Country: US (occurrence: US)
  Receive Date: 20141010
  Receipt Date: 20141121
  Transmission Date: 20150528
  Serious: No
  Sender: FDA-Public Use
  Company Number: US-AMGEN INC.-USASP2014076495

PATIENT
  Age: 57 Year
  Sex: Male

DRUGS (1)
  1. ENBREL [Suspect]
     Active Substance: ETANERCEPT
     Indication: RHEUMATOID ARTHRITIS
     Dosage: 50 MG, QWK
     Route: 065
     Dates: start: 20100315, end: 201409

REACTIONS (6)
  - Dizziness postural [Recovered/Resolved]
  - Dysstasia [Not Recovered/Not Resolved]
  - Pain [Not Recovered/Not Resolved]
  - Feeling abnormal [Not Recovered/Not Resolved]
  - Dyspnoea [Recovered/Resolved]
  - Joint range of motion decreased [Unknown]

NARRATIVE: CASE EVENT DATE: 201406
